FAERS Safety Report 12415144 (Version 1)
Quarter: 2016Q2

REPORT INFORMATION
  Report Type: Spontaneous
  Country: FR (occurrence: FR)
  Receive Date: 20160530
  Receipt Date: 20160530
  Transmission Date: 20160815
  Serious: Yes (Hospitalization)
  Sender: FDA-Public Use
  Company Number: FR-AMGEN-FRASP2016066180

PATIENT
  Age: 74 Year
  Sex: Female

DRUGS (6)
  1. UVEDOSE [Concomitant]
     Active Substance: CHOLECALCIFEROL
     Dosage: 0.016 DF, Q2MO
     Route: 048
  2. MORPHINE [Concomitant]
     Active Substance: MORPHINE
     Indication: SPINAL FRACTURE
     Dosage: UNK
     Dates: end: 201604
  3. PARACETAMOL [Concomitant]
     Active Substance: ACETAMINOPHEN
     Dosage: 3 DF, QD
     Route: 048
  4. CACIT [Concomitant]
     Active Substance: CALCIUM\VITAMIN D
     Dosage: 500 MG, UNK
     Dates: end: 20160425
  5. ESOMEPRAZOLE [Concomitant]
     Active Substance: ESOMEPRAZOLE
     Dosage: 40 MG, QD
     Route: 048
     Dates: end: 20160425
  6. PROLIA [Suspect]
     Active Substance: DENOSUMAB
     Indication: OSTEOPOROTIC FRACTURE
     Dosage: 60 MG, Q6MO
     Route: 058
     Dates: start: 201509

REACTIONS (4)
  - Hypophosphataemia [Recovered/Resolved]
  - Abdominal pain [Recovered/Resolved]
  - Hyperparathyroidism [Recovered/Resolved]
  - Hypocalcaemia [Recovered/Resolved]

NARRATIVE: CASE EVENT DATE: 2016
